FAERS Safety Report 19120602 (Version 1)
Quarter: 2021Q2

REPORT INFORMATION
  Report Type: Spontaneous
  Country: US (occurrence: US)
  Receive Date: 20210410
  Receipt Date: 20210410
  Transmission Date: 20210717
  Serious: No
  Sender: FDA-Public Use
  Company Number: None

PATIENT
  Age: 55 Year
  Sex: Male
  Weight: 81.9 kg

DRUGS (2)
  1. MULTAQ [Suspect]
     Active Substance: DRONEDARONE
     Indication: PRODUCT USED FOR UNKNOWN INDICATION
     Route: 048
  2. RANEXA [Concomitant]
     Active Substance: RANOLAZINE
     Dates: start: 20210408

REACTIONS (2)
  - Atrial fibrillation [None]
  - Atrial flutter [None]

NARRATIVE: CASE EVENT DATE: 20210408
